FAERS Safety Report 6905303-4 (Version None)
Quarter: 2010Q3

REPORT INFORMATION
  Report Type: 
  Country: None (occurrence: None)
  Receive Date: 20100804
  Receipt Date: 20100721
  Transmission Date: 20110219
  Serious: Yes (Other)
  Sender: FDA-Public Use
  Company Number: DE-RANBAXY-2010RR-36449

PATIENT
  Age: 22 Year
  Sex: Male

DRUGS (2)
  1. ISOTRETINOIN [Suspect]
     Dosage: 50 MG, UNK
     Route: 048
  2. DOXYCYCLINE [Concomitant]

REACTIONS (1)
  - ACNE [None]
